FAERS Safety Report 8418616-4 (Version None)
Quarter: 2012Q2

REPORT INFORMATION
  Report Type: 
  Country: None (occurrence: None)
  Receive Date: 20120607
  Receipt Date: 20120530
  Transmission Date: 20120825
  Serious: Yes (Other)
  Sender: FDA-Public Use
  Company Number: US-JNJFOC-20120521480

PATIENT
  Sex: Female
  Weight: 48.99 kg

DRUGS (9)
  1. METOPROLOL TARTRATE [Concomitant]
     Indication: BLOOD PRESSURE
     Route: 048
  2. DIGOXIN [Concomitant]
     Indication: CARDIAC DISORDER
     Route: 048
     Dates: start: 20110101
  3. LOTREL [Concomitant]
     Indication: CARDIAC DISORDER
     Route: 048
  4. HUMULIN INSULIN [Concomitant]
     Indication: DIABETES MELLITUS
     Route: 058
     Dates: start: 20040101
  5. XARELTO [Suspect]
     Indication: ATRIAL FIBRILLATION
     Route: 048
     Dates: start: 20120316, end: 20120528
  6. VITAMIN B-12 [Concomitant]
     Indication: MEDICAL DIET
     Route: 030
  7. GLYBURIDE [Concomitant]
     Indication: DIABETES MELLITUS
     Route: 048
     Dates: start: 20040101, end: 20120324
  8. SYNTHROID [Concomitant]
     Indication: HYPOTHYROIDISM
     Route: 048
  9. SLOW FE [Concomitant]

REACTIONS (6)
  - ACTIVATED PARTIAL THROMBOPLASTIN TIME PROLONGED [None]
  - BACTERIAL TEST [None]
  - BLOOD URINE PRESENT [None]
  - RENAL HAEMORRHAGE [None]
  - PROTHROMBIN TIME PROLONGED [None]
  - BACK PAIN [None]
